FAERS Safety Report 9869375 (Version 1)
Quarter: 2014Q1

REPORT INFORMATION
  Report Type: Spontaneous
  Country: RU (occurrence: RU)
  Receive Date: 20140205
  Receipt Date: 20140205
  Transmission Date: 20141002
  Serious: Yes (Congenital Anomaly)
  Sender: FDA-Public Use
  Company Number: RU-JNJFOC-20140119471

PATIENT
  Sex: Male

DRUGS (1)
  1. TOPIRAMATE [Suspect]
     Indication: EPILEPSY
     Route: 064

REACTIONS (4)
  - Cryptorchism [Unknown]
  - Chondrodystrophy [Unknown]
  - Congenital brain damage [Unknown]
  - Foetal exposure during pregnancy [Recovered/Resolved]
